FAERS Safety Report 8789324 (Version 1)
Quarter: 2012Q4

REPORT INFORMATION
  Report Type: Spontaneous
  Country: US (occurrence: None)
  Receive Date: 20120905
  Receipt Date: 20120905
  Transmission Date: 20130627
  Serious: Yes (Death, Other)
  Sender: FDA-Public Use
  Company Number: TPA2012A06115

PATIENT
  Age: 79 Year
  Sex: Male
  Weight: 74.84 kg

DRUGS (5)
  1. ACTOS (PIOGLITAZONE HYDROCHLORIDE) [Suspect]
     Indication: TYPE II DIABETES MELLITUS
     Dates: start: 200001, end: 201106
  2. METFORMIN (METFORMIN) [Concomitant]
  3. GLUCOPHAGE (MEFORMIN HYDROCHLORIDE) [Concomitant]
  4. NOVOLOG (INSULIN ASPART) [Concomitant]
  5. NOVOLIN (INSULIN) [Concomitant]

REACTIONS (3)
  - Urinary tract infection [None]
  - Nephropathy [None]
  - Bladder cancer [None]
